FAERS Safety Report 4758742-4 (Version None)
Quarter: 2005Q3

REPORT INFORMATION
  Report Type: 
  Country: None (occurrence: None)
  Receive Date: 20050831
  Receipt Date: 20050831
  Transmission Date: 20060218
  Serious: Yes (Hospitalization)
  Sender: FDA-Public Use
  Company Number: None

PATIENT
  Age: 53 Year
  Sex: Male
  Weight: 107.5025 kg

DRUGS (4)
  1. OXALIPATIN 100 MG [Suspect]
     Indication: COLON CANCER
     Dosage: 194 MG IV Q 2 WKS
     Route: 042
     Dates: start: 20050426
  2. AVASTIN [Concomitant]
  3. FLUOROURACIL [Concomitant]
  4. OXALIPLATIN [Concomitant]

REACTIONS (4)
  - ABDOMINAL PAIN [None]
  - HYPOTENSION [None]
  - INFUSION RELATED REACTION [None]
  - URTICARIA [None]
